FAERS Safety Report 10728113 (Version 1)
Quarter: 2015Q1

REPORT INFORMATION
  Report Type: Spontaneous
  Country: KP (occurrence: KP)
  Receive Date: 20150121
  Receipt Date: 20150121
  Transmission Date: 20150721
  Serious: Yes (Life-Threatening)
  Sender: FDA-Public Use
  Company Number: KP-GE HEALTHCARE MEDICAL DIAGNOSTICS-VISP-PR-1501L-0014

PATIENT
  Age: 58 Year
  Sex: Female
  Weight: 56 kg

DRUGS (3)
  1. VISIPAQUE [Suspect]
     Active Substance: IODIXANOL
     Indication: CAROTID ARTERY ANEURYSM
     Dosage: 3.45 CM^3/KG = 193.2 ML
     Route: 065
  2. VISIPAQUE [Suspect]
     Active Substance: IODIXANOL
     Indication: DIAGNOSTIC PROCEDURE
  3. VISIPAQUE [Suspect]
     Active Substance: IODIXANOL
     Indication: THERAPEUTIC PROCEDURE

REACTIONS (3)
  - Coma scale abnormal [Recovered/Resolved]
  - Blood brain barrier defect [Recovered/Resolved]
  - Hemiparesis [Recovered/Resolved]
